FAERS Safety Report 7177265-9 (Version None)
Quarter: 2010Q4

REPORT INFORMATION
  Report Type: 
  Country: None (occurrence: None)
  Receive Date: 20101216
  Receipt Date: 20101216
  Transmission Date: 20110411
  Serious: Yes (Hospitalization)
  Sender: FDA-Public Use
  Company Number: None

PATIENT
  Sex: Female
  Weight: 63.05 kg

DRUGS (2)
  1. DILANTIN [Suspect]
     Indication: CONVULSION
     Dosage: 1 TWO TIMES DAILY PO
     Route: 048
  2. DILANTIN [Suspect]
     Dosage: 2 TWO TIMES DAILY PO
     Route: 048

REACTIONS (4)
  - GENERALISED OEDEMA [None]
  - HYPOTENSION [None]
  - PYREXIA [None]
  - RASH GENERALISED [None]
